FAERS Safety Report 9711472 (Version 1)
Quarter: 2013Q4

REPORT INFORMATION
  Report Type: Spontaneous
  Country: US (occurrence: US)
  Receive Date: 20131126
  Receipt Date: 20131126
  Transmission Date: 20140711
  Serious: No
  Sender: FDA-Public Use
  Company Number: US-BRISTOL-MYERS SQUIBB COMPANY-18757799

PATIENT
  Age: 76 Year
  Sex: Male
  Weight: 119.27 kg

DRUGS (3)
  1. BYDUREON [Suspect]
     Indication: TYPE 2 DIABETES MELLITUS
     Dates: start: 201212
  2. METFORMIN HCL IR 500MG [Concomitant]
  3. AMARYL [Concomitant]
     Dosage: 4 MG TABLETS.

REACTIONS (2)
  - Abdominal discomfort [Unknown]
  - Eructation [Unknown]
